FAERS Safety Report 8498808-9 (Version None)
Quarter: 2012Q3

REPORT INFORMATION
  Report Type: 
  Country: None (occurrence: None)
  Receive Date: 20120710
  Receipt Date: 20120705
  Transmission Date: 20120928
  Serious: Yes (Other)
  Sender: FDA-Public Use
  Company Number: US-AMGEN-USASP2012032315

PATIENT
  Sex: Female

DRUGS (14)
  1. CALCIUM WITH VITAMIN D             /00944201/ [Concomitant]
  2. GAVISCON [Concomitant]
  3. PROLIA [Suspect]
     Indication: OSTEOPOROSIS
     Dosage: 60 MG, Q6MO
     Route: 058
     Dates: start: 20111119
  4. ACIPHEX [Concomitant]
     Dosage: 20 MG, UNK
  5. LOPERAMIDE [Concomitant]
     Dosage: UNK UNK, PRN
  6. GAS-X [Concomitant]
     Dosage: UNK UNK, PRN
  7. RESTASIS [Concomitant]
  8. MULTIVITAMIN                       /00097801/ [Concomitant]
  9. DEPO-MEDROL [Concomitant]
     Dosage: UNK UNK, Q3MO
  10. VITAMIN D [Concomitant]
  11. BUTALBITAL, ASPIRIN, AND CAFFEINE [Concomitant]
  12. CHLOROTHIAZIDE [Concomitant]
     Dosage: 125 MG, BID
  13. ATENOLOL [Concomitant]
     Dosage: 50 MG, UNK
  14. PAXIL [Concomitant]
     Dosage: 40 MG, UNK

REACTIONS (9)
  - ECCHYMOSIS [None]
  - INTERVERTEBRAL DISC PROTRUSION [None]
  - LUMBAR SPINAL STENOSIS [None]
  - JOINT CREPITATION [None]
  - PATELLA FRACTURE [None]
  - LOOSE TOOTH [None]
  - FALL [None]
  - SCOLIOSIS [None]
  - SPINAL LAMINECTOMY [None]
